FAERS Safety Report 4416653-8 (Version None)
Quarter: 2004Q3

REPORT INFORMATION
  Report Type: 
  Country: None (occurrence: None)
  Receive Date: 20040802
  Receipt Date: 20040720
  Transmission Date: 20050211
  Serious: Yes (Hospitalization)
  Sender: FDA-Public Use
  Company Number: US013456

PATIENT
  Age: 19 Year
  Sex: Male

DRUGS (3)
  1. PROVIGIL [Suspect]
     Indication: ASTHENIA
     Dosage: 50 MG ONCE ORAL
     Route: 048
     Dates: start: 20040610, end: 20040610
  2. RISPERDAL [Concomitant]
  3. GABITRIL [Concomitant]

REACTIONS (3)
  - ANXIETY [None]
  - PANIC ATTACK [None]
  - RESTLESS LEGS SYNDROME [None]
